FAERS Safety Report 8576835-0 (Version None)
Quarter: 2012Q3

REPORT INFORMATION
  Report Type: 
  Country: None (occurrence: None)
  Receive Date: 20120807
  Receipt Date: 20120730
  Transmission Date: 20120928
  Serious: Yes (Other)
  Sender: FDA-Public Use
  Company Number: US-FRI-1000037507

PATIENT
  Sex: Female

DRUGS (2)
  1. LEVOTHROID [Suspect]
     Indication: HYPOTHYROIDISM
     Dosage: 50 MCG
     Route: 048
     Dates: start: 20110501, end: 20120601
  2. LEVOTHROID [Suspect]
     Dosage: 150 MCG
     Route: 048
     Dates: start: 20120601, end: 20120627

REACTIONS (3)
  - INFERTILITY [None]
  - MATERNAL EXPOSURE DURING PREGNANCY [None]
  - ABORTION SPONTANEOUS [None]
